FAERS Safety Report 14664337 (Version 1)
Quarter: 2018Q1

REPORT INFORMATION
  Report Type: Spontaneous
  Country: US (occurrence: US)
  Receive Date: 20180319
  Receipt Date: 20180319
  Transmission Date: 20180509
  Serious: No
  Sender: FDA-Public Use
  Company Number: None

PATIENT
  Age: 51 Year
  Sex: Female

DRUGS (1)
  1. CAPECITABINE  500 MG WEST-WARD [Suspect]
     Active Substance: CAPECITABINE
     Indication: BREAST CANCER FEMALE
     Dosage: BID X 14 DAYS ON, THEN 7 DAYS OFF
     Route: 048
     Dates: start: 20180224

REACTIONS (5)
  - Cold sweat [None]
  - Chest discomfort [None]
  - Flushing [None]
  - Tension headache [None]
  - Pallor [None]

NARRATIVE: CASE EVENT DATE: 20180304
